FAERS Safety Report 13599284 (Version 2)
Quarter: 2017Q2

REPORT INFORMATION
  Report Type: Spontaneous
  Country: BR (occurrence: BR)
  Receive Date: 20170531
  Receipt Date: 20170626
  Transmission Date: 20170830
  Serious: Yes (Hospitalization, Other)
  Sender: FDA-Public Use
  Company Number: BR-PFIZER INC-2014236584

PATIENT
  Age: 68 Year
  Sex: Female

DRUGS (4)
  1. FRONTAL XR [Suspect]
     Active Substance: ALPRAZOLAM
     Dosage: UNK
  2. RIVOTRIL [Concomitant]
     Active Substance: CLONAZEPAM
     Indication: SLEEP DISORDER
     Dosage: 2 MG (ONE TABLET), 1X/DAY
  3. FRONTAL [Suspect]
     Active Substance: ALPRAZOLAM
     Indication: DEPRESSION
     Dosage: 1 TABLET, DAILY
  4. FRONTAL XR [Suspect]
     Active Substance: ALPRAZOLAM
     Indication: DEPRESSION
     Dosage: 1 MG (ONE TABLET), DAILY
     Route: 048

REACTIONS (5)
  - Cerebrovascular accident [Not Recovered/Not Resolved]
  - Swelling [Not Recovered/Not Resolved]
  - Nervousness [Not Recovered/Not Resolved]
  - Abasia [Not Recovered/Not Resolved]
  - Movement disorder [Not Recovered/Not Resolved]

NARRATIVE: CASE EVENT DATE: 20170222
